FAERS Safety Report 5662641-3 (Version None)
Quarter: 2008Q1

REPORT INFORMATION
  Report Type: 
  Country: None (occurrence: None)
  Receive Date: 20080313
  Receipt Date: 20080304
  Transmission Date: 20080703
  Serious: Yes (Other)
  Sender: FDA-Public Use
  Company Number: PHHY2008JP02737

PATIENT

DRUGS (3)
  1. PHENYTOIN [Concomitant]
     Route: 048
  2. VALPROATE SODIUM [Concomitant]
     Route: 048
  3. DIOVAN [Suspect]
     Dosage: 80 MG, UNK
     Route: 048

REACTIONS (1)
  - EPILEPSY [None]
